FAERS Safety Report 6664158-6 (Version None)
Quarter: 2010Q2

REPORT INFORMATION
  Report Type: 
  Country: None (occurrence: None)
  Receive Date: 20100401
  Receipt Date: 20100325
  Transmission Date: 20101027
  Serious: Yes (Hospitalization)
  Sender: FDA-Public Use
  Company Number: B0644881A

PATIENT
  Age: 71 Year
  Sex: Female

DRUGS (10)
  1. SALBUTAMOL [Suspect]
     Indication: WHEEZING
     Dosage: 2PUFF FOUR TIMES PER DAY
     Route: 055
     Dates: start: 20100301
  2. PRAVASTATIN SODIUM [Concomitant]
     Route: 065
  3. IRBESARTAN [Concomitant]
  4. CIPROFLOXACIN [Concomitant]
     Route: 065
  5. SYMBICORT [Concomitant]
     Route: 065
  6. ALBUTEROL [Concomitant]
     Route: 065
  7. MONTELUKAST SODIUM [Concomitant]
     Route: 065
  8. ESOMEPRAZOLE MAGNESIUM [Concomitant]
     Route: 065
  9. BUDESONIDE [Concomitant]
     Route: 065
  10. FORMOTEROL FUMARATE [Concomitant]
     Route: 065

REACTIONS (3)
  - AORTIC VALVE DISEASE [None]
  - ATRIAL FIBRILLATION [None]
  - HEART RATE INCREASED [None]
